FAERS Safety Report 14764421 (Version 2)
Quarter: 2018Q4

REPORT INFORMATION
  Report Type: Spontaneous
  Country: IT (occurrence: IT)
  Receive Date: 20180416
  Receipt Date: 20181130
  Transmission Date: 20190204
  Serious: Yes (Hospitalization)
  Sender: FDA-Public Use
  Company Number: IT-TEVA-2018-IT-880207

PATIENT
  Age: 77 Year
  Sex: Female

DRUGS (7)
  1. TAVOR (LORAZEPAM) [Concomitant]
     Active Substance: LORAZEPAM
  2. VENLAFAXINE [Suspect]
     Active Substance: VENLAFAXINE HYDROCHLORIDE
     Indication: BLUNTED AFFECT
     Dosage: 75 MILLIGRAM DAILY;
     Route: 048
  3. NEBIVOLOL. [Concomitant]
     Active Substance: NEBIVOLOL
     Route: 048
  4. TERAXANS 10MG/2,5MG COMPRESSE RIVESTITE CON FILM [Concomitant]
  5. SIMVASTATIN. [Concomitant]
     Active Substance: SIMVASTATIN
     Route: 048
  6. CARDIOASPIRIN [Concomitant]
     Active Substance: ASPIRIN
  7. PROPAFENONE. [Concomitant]
     Active Substance: PROPAFENONE
     Route: 048

REACTIONS (2)
  - Product measured potency issue [Unknown]
  - Depressed mood [Unknown]

NARRATIVE: CASE EVENT DATE: 20170503
